FAERS Safety Report 6109500-X (Version None)
Quarter: 2009Q1

REPORT INFORMATION
  Report Type: 
  Country: None (occurrence: None)
  Receive Date: 20090306
  Receipt Date: 20090306
  Transmission Date: 20090719
  Serious: Yes (Life-Threatening, Hospitalization)
  Sender: FDA-Public Use
  Company Number: None

PATIENT
  Sex: Female
  Weight: 66 kg

DRUGS (6)
  1. LISINOPRIL [Suspect]
     Indication: HYPERTENSION
     Dosage: 10MG DAILY PO UNKNOWN
     Route: 048
  2. NORVASC [Concomitant]
  3. LIPITOR [Concomitant]
  4. HYDROCHLOROTHIAZIDE [Concomitant]
  5. IMDUR [Concomitant]
  6. ASPIRIN [Concomitant]

REACTIONS (1)
  - ANGIOEDEMA [None]
